FAERS Safety Report 16094356 (Version 2)
Quarter: 2019Q1

REPORT INFORMATION
  Report Type: Spontaneous
  Country: US (occurrence: US)
  Receive Date: 20190320
  Receipt Date: 20190325
  Transmission Date: 20190418
  Serious: No
  Sender: FDA-Public Use
  Company Number: US-PFIZER INC-2018085757

PATIENT
  Age: 50 Year
  Sex: Female

DRUGS (2)
  1. CYMBALTA [Suspect]
     Active Substance: DULOXETINE HYDROCHLORIDE
     Dosage: 60 MG, DAILY(EVERYDAY)
  2. LYRICA [Suspect]
     Active Substance: PREGABALIN
     Indication: FIBROMYALGIA
     Dosage: 300 MG, 2X/DAY [IN THE EVENING AND AT BEDTIME]/(2 TIMES EVERY DAY)
     Route: 048

REACTIONS (5)
  - Back pain [Recovering/Resolving]
  - Sleep disorder [Recovering/Resolving]
  - Insomnia [Unknown]
  - Neck pain [Recovering/Resolving]
  - Product use issue [Unknown]
